FAERS Safety Report 21181611 (Version 4)
Quarter: 2022Q3

REPORT INFORMATION
  Report Type: Spontaneous
  Country: US (occurrence: US)
  Receive Date: 20220806
  Receipt Date: 20220930
  Transmission Date: 20221027
  Serious: No
  Sender: FDA-Public Use
  Company Number: US-SA-SAC20220801001580

PATIENT
  Age: 43 Year
  Sex: Female

DRUGS (1)
  1. DUPIXENT [Suspect]
     Active Substance: DUPILUMAB
     Dosage: 300 MG, OTHER
     Route: 058
     Dates: start: 202205, end: 202207

REACTIONS (8)
  - Skin lesion [Recovered/Resolved]
  - Pruritus [Recovered/Resolved]
  - Psoriasis [Unknown]
  - Genital herpes [Unknown]
  - Condition aggravated [Unknown]
  - Blepharitis [Unknown]
  - Hypersensitivity [Unknown]
  - Oral herpes [Unknown]

NARRATIVE: CASE EVENT DATE: 20220101
